FAERS Safety Report 16497439 (Version 8)
Quarter: 2020Q2

REPORT INFORMATION
  Report Type: Spontaneous
  Country: US (occurrence: US)
  Receive Date: 20190628
  Receipt Date: 20200612
  Transmission Date: 20200713
  Serious: No
  Sender: FDA-Public Use
  Company Number: US-SA-2019SA176049

PATIENT

DRUGS (6)
  1. LEVALBUTEROL HYDROCHLORIDE. [Concomitant]
     Active Substance: LEVALBUTEROL HYDROCHLORIDE
  2. DUPIXENT [Suspect]
     Active Substance: DUPILUMAB
     Indication: DERMATITIS ATOPIC
     Dosage: 300 MG, QOW
     Route: 058
     Dates: start: 20190624
  3. DUPIXENT [Suspect]
     Active Substance: DUPILUMAB
     Dosage: 300 MG, QW
     Route: 058
     Dates: start: 20200213
  4. PREDNISONE. [Concomitant]
     Active Substance: PREDNISONE
  5. DUPIXENT [Suspect]
     Active Substance: DUPILUMAB
     Dosage: 300 MG, QOW
     Route: 058
     Dates: start: 2019, end: 2020
  6. AZITHROMYCIN ANHYDROUS. [Concomitant]
     Active Substance: AZITHROMYCIN ANHYDROUS

REACTIONS (13)
  - Hypoacusis [Recovered/Resolved]
  - Product dose omission [Unknown]
  - General physical condition abnormal [Recovered/Resolved]
  - Nasopharyngitis [Not Recovered/Not Resolved]
  - Eye irritation [Recovered/Resolved]
  - Oropharyngeal pain [Recovered/Resolved]
  - Pruritus [Not Recovered/Not Resolved]
  - Ear discomfort [Recovered/Resolved]
  - Eye pruritus [Not Recovered/Not Resolved]
  - Lacrimation increased [Recovered/Resolved]
  - Dry eye [Recovered/Resolved]
  - Dermatitis atopic [Not Recovered/Not Resolved]
  - Product use issue [Unknown]

NARRATIVE: CASE EVENT DATE: 2019
